FAERS Safety Report 8584433-8 (Version None)
Quarter: 2012Q3

REPORT INFORMATION
  Report Type: 
  Country: None (occurrence: None)
  Receive Date: 20120730
  Receipt Date: 20120608
  Transmission Date: 20120928
  Serious: Yes (Other)
  Sender: FDA-Public Use
  Company Number: 2012SA042006

PATIENT
  Age: 45 Year
  Sex: Female

DRUGS (1)
  1. CAPZASIN [Suspect]
     Dates: start: 20120608

REACTIONS (2)
  - BURNING SENSATION [None]
  - APPLICATION SITE VESICLES [None]
